FAERS Safety Report 9939120 (Version 1)
Quarter: 2014Q1

REPORT INFORMATION
  Report Type: Report from Study
  Country: US (occurrence: US)
  Receive Date: 20140303
  Receipt Date: 20140303
  Transmission Date: 20141002
  Serious: No
  Sender: FDA-Public Use
  Company Number: US-ABBVIE-13P-163-1036945-00

PATIENT
  Age: 56 Year
  Sex: Female

DRUGS (7)
  1. HUMIRA [Suspect]
     Indication: RHEUMATOID ARTHRITIS
     Dates: start: 20121018
  2. BENICAR HCT [Concomitant]
     Indication: BLOOD PRESSURE
  3. LEVOTHYROXINE [Concomitant]
     Indication: THYROID DISORDER
  4. PREMARIN [Concomitant]
     Indication: HORMONE REPLACEMENT THERAPY
  5. PRILOSEC [Concomitant]
     Indication: GASTROOESOPHAGEAL REFLUX DISEASE
  6. AMBIEN [Concomitant]
     Indication: INSOMNIA
     Dosage: AT BEDTIME
  7. NORETHINDRONE [Concomitant]
     Indication: MENOPAUSAL SYMPTOMS
     Dosage: PILL

REACTIONS (1)
  - Fungal infection [Not Recovered/Not Resolved]
